FAERS Safety Report 6398488-2 (Version None)
Quarter: 2009Q4

REPORT INFORMATION
  Report Type: 
  Country: None (occurrence: None)
  Receive Date: 20091013
  Receipt Date: 20091006
  Transmission Date: 20100525
  Serious: Yes (Hospitalization, Other)
  Sender: FDA-Public Use
  Company Number: B0593280A

PATIENT
  Sex: Female
  Weight: 54 kg

DRUGS (7)
  1. ZANTAC [Suspect]
     Indication: PREMEDICATION
     Dosage: 50MG PER DAY
     Route: 065
     Dates: start: 20040101, end: 20090710
  2. DECADRON [Suspect]
     Indication: PREMEDICATION
     Dosage: 8MG PER DAY
     Route: 065
  3. SOLU-MEDROL [Concomitant]
     Indication: PREMEDICATION
     Dosage: 1000MG PER DAY
     Route: 042
  4. DIPHENHYDRAMINE HCL [Concomitant]
     Indication: PREMEDICATION
     Dosage: 50MG PER DAY
     Route: 048
  5. SEISHOKU [Concomitant]
     Route: 042
  6. SOLULACT [Concomitant]
     Route: 042
  7. CHINESE MEDICINE [Concomitant]
     Route: 048

REACTIONS (15)
  - ANAPHYLACTIC SHOCK [None]
  - CHEST DISCOMFORT [None]
  - DEPRESSED LEVEL OF CONSCIOUSNESS [None]
  - DIARRHOEA [None]
  - DIZZINESS [None]
  - ECZEMA [None]
  - FEELING ABNORMAL [None]
  - FEELING COLD [None]
  - NAUSEA [None]
  - OEDEMA [None]
  - OXYGEN SATURATION DECREASED [None]
  - PRURITUS [None]
  - RASH [None]
  - URTICARIA [None]
  - VOMITING [None]
